FAERS Safety Report 7640325-X (Version None)
Quarter: 2011Q3

REPORT INFORMATION
  Report Type: 
  Country: None (occurrence: None)
  Receive Date: 20110728
  Receipt Date: 20110722
  Transmission Date: 20111222
  Serious: Yes (Other)
  Sender: FDA-Public Use
  Company Number: US-BAYER-2011-064312

PATIENT
  Age: 57 Year
  Sex: Male

DRUGS (2)
  1. GADAVIST [Suspect]
     Indication: PRODUCT USED FOR UNKNOWN INDICATION
     Dosage: UNK
     Dates: start: 20110715, end: 20110715
  2. PLAVIX [Concomitant]
     Indication: CORONARY ARTERY DISEASE

REACTIONS (3)
  - PAIN IN EXTREMITY [None]
  - INJECTION SITE PAIN [None]
  - THROMBOSIS [None]
